FAERS Safety Report 16901238 (Version 5)
Quarter: 2019Q4

REPORT INFORMATION
  Report Type: Spontaneous
  Country: US (occurrence: US)
  Receive Date: 20191009
  Receipt Date: 20191022
  Transmission Date: 20200122
  Serious: Yes (Other)
  Sender: FDA-Public Use
  Company Number: US-GILEAD-2019-0432398

PATIENT
  Sex: Female

DRUGS (1)
  1. RANEXA [Suspect]
     Active Substance: RANOLAZINE
     Indication: PRODUCT USED FOR UNKNOWN INDICATION
     Dosage: 500 MG, BID
     Route: 065

REACTIONS (7)
  - Dyspepsia [Unknown]
  - Product label issue [Unknown]
  - Product colour issue [Unknown]
  - Oral discomfort [Unknown]
  - Intentional dose omission [Unknown]
  - Angina pectoris [Unknown]
  - Product taste abnormal [Unknown]
